FAERS Safety Report 19092772 (Version 2)
Quarter: 2021Q2

REPORT INFORMATION
  Report Type: Report from Study
  Country: CA (occurrence: CA)
  Receive Date: 20210405
  Receipt Date: 20210531
  Transmission Date: 20210717
  Serious: Yes (Other)
  Sender: FDA-Public Use
  Company Number: CA-JNJFOC-20210357005

PATIENT
  Age: 10 Year
  Sex: Female
  Weight: 47 kg

DRUGS (1)
  1. REMICADE [Suspect]
     Active Substance: INFLIXIMAB
     Indication: COLITIS ULCERATIVE
     Dosage: ON 25?MAY?2021, THE PATIENT RECEIVED 11TH INFLIXIMAB INFUSION OF DOSE 400MG.
     Route: 042
     Dates: start: 20200813

REACTIONS (3)
  - Haematochezia [Not Recovered/Not Resolved]
  - Therapeutic product effect decreased [Unknown]
  - Abdominal pain [Not Recovered/Not Resolved]

NARRATIVE: CASE EVENT DATE: 20210325
